FAERS Safety Report 4592511-3 (Version None)
Quarter: 2005Q1

REPORT INFORMATION
  Report Type: 
  Country: None (occurrence: None)
  Receive Date: 20050222
  Receipt Date: 20050207
  Transmission Date: 20050727
  Serious: Yes (Life-Threatening, Hospitalization, Other)
  Sender: FDA-Public Use
  Company Number: 2004095781

PATIENT
  Age: 67 Year
  Sex: Female
  Weight: 52.1637 kg

DRUGS (14)
  1. CELEBREX [Suspect]
     Indication: ARTHRITIS
     Dosage: 400 MG (200 MG, 1 IN 2 D), ORAL
     Route: 048
     Dates: start: 19991101, end: 20030101
  2. CELEBREX [Suspect]
     Indication: OSTEOARTHRITIS
     Dosage: 400 MG (200 MG, 1 IN 2 D), ORAL
     Route: 048
     Dates: start: 19991101, end: 20030101
  3. CELEBREX [Suspect]
     Indication: SCIATICA
     Dosage: 400 MG (200 MG, 1 IN 2 D), ORAL
     Route: 048
     Dates: start: 19991101, end: 20030101
  4. BEXTRA [Suspect]
     Indication: ARTHRITIS
     Dosage: 10 MG (10 MG, 1 IN 1 D), ORAL
     Route: 048
     Dates: start: 20040101, end: 20041001
  5. PREMARIN [Suspect]
     Indication: HYSTERECTOMY
  6. PREMARIN [Suspect]
     Indication: MENOPAUSE
  7. ZOCOR [Suspect]
     Indication: ILL-DEFINED DISORDER
     Dosage: 40 MG (40 MG, 1 IN 1 D), ORAL
     Route: 048
  8. DAILY VITAMINS (VITAMINS NOS) [Concomitant]
  9. VITAMIN E [Concomitant]
  10. ATENOLOL [Concomitant]
  11. ZANTAC [Concomitant]
  12. FERROUS SULFATE TAB [Concomitant]
  13. ASPIRIN [Concomitant]
  14. PROTONIX [Concomitant]

REACTIONS (15)
  - ARTHRALGIA [None]
  - BLOOD CHOLESTEROL INCREASED [None]
  - CORONARY ARTERY DISEASE [None]
  - DIARRHOEA [None]
  - DRUG EFFECT DECREASED [None]
  - HAEMATOCHEZIA [None]
  - HAEMATOCRIT DECREASED [None]
  - HYPOAESTHESIA [None]
  - MYALGIA [None]
  - MYOCARDIAL INFARCTION [None]
  - OSTEOARTHRITIS [None]
  - RASH ERYTHEMATOUS [None]
  - RASH PRURITIC [None]
  - SCIATICA [None]
  - VENTRICULAR HYPOKINESIA [None]
